FAERS Safety Report 8061922-6 (Version None)
Quarter: 2012Q1

REPORT INFORMATION
  Report Type: 
  Country: None (occurrence: None)
  Receive Date: 20120117
  Receipt Date: 20120106
  Transmission Date: 20120608
  Serious: Yes (Other)
  Sender: FDA-Public Use
  Company Number: ADR-2011-11471

PATIENT
  Age: 53 Year
  Sex: Male

DRUGS (2)
  1. LIORESAL [Suspect]
     Indication: MUSCLE SPASTICITY
     Dosage: SEE B5
  2. LIORESAL [Suspect]
     Indication: SPINAL CORD INJURY
     Dosage: SEE B5

REACTIONS (2)
  - ERYTHEMA [None]
  - AMNESIA [None]
